FAERS Safety Report 11686242 (Version 1)
Quarter: 2015Q4

REPORT INFORMATION
  Report Type: Spontaneous
  Country: AU (occurrence: AU)
  Receive Date: 20151030
  Receipt Date: 20151030
  Transmission Date: 20160304
  Serious: Yes (Death, Other)
  Sender: FDA-Public Use
  Company Number: AU-APOTEX-2015AP007909

PATIENT
  Age: 9 Year
  Sex: Female

DRUGS (19)
  1. TACROLIMUS. [Suspect]
     Active Substance: TACROLIMUS
     Dosage: TARGETED AT BLOOD TROUGH LEVELS WITH A TARGET OF 8-10 MCG/L
     Route: 065
  2. TACROLIMUS. [Suspect]
     Active Substance: TACROLIMUS
     Dosage: TARGETED AT TROUGH LEVELS OF 5 MCG/L
     Route: 065
  3. PREDNISOLONE. [Suspect]
     Active Substance: PREDNISOLONE
     Indication: IMMUNOSUPPRESSANT DRUG THERAPY
     Dosage: 25 MG, DAILY
     Route: 048
  4. GANCICLOVIR. [Suspect]
     Active Substance: GANCICLOVIR
     Indication: GASTROINTESTINAL VIRAL INFECTION
     Route: 042
  5. FOSCARNET [Concomitant]
     Active Substance: FOSCARNET
     Indication: GASTROINTESTINAL VIRAL INFECTION
     Dosage: UNK
     Route: 065
  6. MYCOPHENOLATE [Suspect]
     Active Substance: MYCOPHENOLIC ACID
     Indication: IMMUNOSUPPRESSANT DRUG THERAPY
     Dosage: 400 MG, BID
  7. MYFORTIC [Suspect]
     Active Substance: MYCOPHENOLATE SODIUM
     Indication: IMMUNOSUPPRESSANT DRUG THERAPY
     Dosage: 360 MG, BID
  8. COTRIMOXAZOLE [Concomitant]
     Active Substance: SULFAMETHOXAZOLE\TRIMETHOPRIM
     Indication: RENAL TRANSPLANT
     Route: 065
  9. MYCOPHENOLATE [Suspect]
     Active Substance: MYCOPHENOLIC ACID
     Dosage: 300 MG, BID
  10. TACROLIMUS. [Suspect]
     Active Substance: TACROLIMUS
     Dosage: TARGETED AT TROUGH LEVELS OF 3 MCG/L
     Route: 065
  11. TACROLIMUS. [Suspect]
     Active Substance: TACROLIMUS
     Dosage: 0.1 MG, DAILY (0.1 MG/DAY (SERUM CONCENTRATION { 2MCG/L)
  12. PREDNISOLONE. [Suspect]
     Active Substance: PREDNISOLONE
     Dosage: 8 MG, UNK
     Route: 048
  13. TACROLIMUS. [Suspect]
     Active Substance: TACROLIMUS
     Indication: IMMUNOSUPPRESSANT DRUG THERAPY
     Dosage: 3.5 MG, BID (0.15 MG/KG/DOSE)
     Route: 065
  14. BASILIXIMAB [Suspect]
     Active Substance: BASILIXIMAB
     Indication: IMMUNOSUPPRESSANT DRUG THERAPY
     Dosage: 10 MG INDUCTION ON DAYS 0 AND 4
  15. HYDROCORTISONE. [Suspect]
     Active Substance: HYDROCORTISONE
     Indication: IMMUNOSUPPRESSANT DRUG THERAPY
     Dosage: 20 MG, DAILY
     Route: 065
  16. RANITIDINE [Concomitant]
     Active Substance: RANITIDINE\RANITIDINE HYDROCHLORIDE
     Indication: RENAL TRANSPLANT
     Route: 065
  17. NYSTATIN. [Concomitant]
     Active Substance: NYSTATIN
     Indication: RENAL TRANSPLANT
     Route: 065
  18. AZATHIOPRINE. [Suspect]
     Active Substance: AZATHIOPRINE
     Indication: IMMUNOSUPPRESSANT DRUG THERAPY
     Dosage: 50 MG, DAILY
     Route: 065
  19. VALGANCICLOVIR [Concomitant]
     Active Substance: VALGANCICLOVIR
     Indication: PRODUCT USED FOR UNKNOWN INDICATION

REACTIONS (6)
  - JC virus infection [Fatal]
  - Systemic inflammatory response syndrome [Fatal]
  - Progressive multifocal leukoencephalopathy [Fatal]
  - Ileus [Fatal]
  - Septic shock [Fatal]
  - Oliguria [Fatal]
